FAERS Safety Report 9957312 (Version 1)
Quarter: 2014Q1

REPORT INFORMATION
  Report Type: Report from Study
  Country: US (occurrence: US)
  Receive Date: 20140304
  Receipt Date: 20140304
  Transmission Date: 20141002
  Serious: No
  Sender: FDA-Public Use
  Company Number: US-ABBVIE-13P-163-1098113-00

PATIENT
  Sex: Male

DRUGS (1)
  1. HUMIRA [Suspect]
     Indication: CROHN^S DISEASE
     Dates: start: 20130329, end: 20130515

REACTIONS (3)
  - Cough [Recovering/Resolving]
  - Pulmonary congestion [Recovering/Resolving]
  - Respiratory disorder [Recovering/Resolving]
